FAERS Safety Report 6702801-3 (Version None)
Quarter: 2010Q2

REPORT INFORMATION
  Report Type: 
  Country: None (occurrence: None)
  Receive Date: 20100428
  Receipt Date: 20100419
  Transmission Date: 20101027
  Serious: Yes (Other)
  Sender: FDA-Public Use
  Company Number: 1000010133

PATIENT
  Age: 82 Year
  Sex: Female

DRUGS (14)
  1. MEMANTINE HCL [Suspect]
     Indication: AMNESIA
     Dosage: 1 DOSAGE FORMS (1 DOSAGE FORMS, 1 IN  1 D)
     Dates: start: 20090901, end: 20090903
  2. DEPAKENE [Suspect]
     Indication: EPILEPSY
     Dosage: SEE IMAGE
     Route: 048
     Dates: start: 20081210, end: 20081212
  3. DEPAKENE [Suspect]
     Indication: EPILEPSY
     Dosage: SEE IMAGE
     Route: 048
     Dates: start: 20081213, end: 20081214
  4. DEPAKENE [Suspect]
     Indication: EPILEPSY
     Dosage: SEE IMAGE
     Route: 048
     Dates: start: 20081215, end: 20081217
  5. DEPAKENE [Suspect]
     Indication: EPILEPSY
     Dosage: SEE IMAGE
     Route: 048
     Dates: start: 20081218, end: 20081219
  6. DEPAKENE [Suspect]
     Indication: EPILEPSY
     Dosage: SEE IMAGE
     Route: 048
     Dates: start: 20081219, end: 20090114
  7. DEPAKENE [Suspect]
     Indication: EPILEPSY
     Dosage: 1000 GM (500 GM,2 IN 1 D), ORAL; 500 MG (500 MG, 1 IN 1 D), ORAL
     Route: 048
     Dates: start: 20090115, end: 20090904
  8. DEPAKENE [Suspect]
     Indication: EPILEPSY
     Dosage: 1000 GM (500 GM,2 IN 1 D), ORAL; 500 MG (500 MG, 1 IN 1 D), ORAL
     Route: 048
     Dates: start: 20090905, end: 20090906
  9. DEPAKENE [Suspect]
     Indication: EPILEPSY
     Dosage: 1000 GM (500 GM,2 IN 1 D), ORAL; 500 MG (500 MG, 1 IN 1 D), ORAL
     Route: 048
     Dates: start: 20090907, end: 20090913
  10. DEPAKENE [Suspect]
     Indication: EPILEPSY
     Dosage: 1000 GM (500 GM, 2 IN 1 D), ORAL
     Route: 048
     Dates: start: 20090914
  11. NEURONTIN [Suspect]
     Dosage: 400 MG (400 MG,1 IN 1 D), ORAL
     Route: 048
     Dates: start: 20090905, end: 20090905
  12. NEURONTIN [Suspect]
     Dosage: 800 MG (400 MG,2 IN 1 D),ORAL
     Route: 048
     Dates: start: 20090906, end: 20090914
  13. PHENYTOIN SODIUM CAP [Concomitant]
  14. PLAVIX [Concomitant]

REACTIONS (7)
  - ALTERED STATE OF CONSCIOUSNESS [None]
  - ASTHENIA [None]
  - BALANCE DISORDER [None]
  - PARAESTHESIA [None]
  - SOMNOLENCE [None]
  - THINKING ABNORMAL [None]
  - URINE ABNORMALITY [None]
